FAERS Safety Report 10236472 (Version 3)
Quarter: 2014Q3

REPORT INFORMATION
  Report Type: Report from Study
  Country: JP (occurrence: JP)
  Receive Date: 20140613
  Receipt Date: 20140901
  Transmission Date: 20150326
  Serious: Yes (Death)
  Sender: FDA-Public Use
  Company Number: JP-BRISTOL-MYERS SQUIBB COMPANY-21016522

PATIENT
  Age: 78 Year
  Sex: Male
  Weight: 64 kg

DRUGS (14)
  1. TAKEPRON [Concomitant]
     Active Substance: LANSOPRAZOLE
     Indication: PROPHYLAXIS
  2. LIPITOR [Concomitant]
     Active Substance: ATORVASTATIN CALCIUM
  3. METGLUCO [Concomitant]
     Active Substance: METFORMIN HYDROCHLORIDE
  4. TRAMCET [Concomitant]
     Active Substance: ACETAMINOPHEN\TRAMADOL
     Indication: PAIN
  5. BUCILLAMINE [Concomitant]
     Active Substance: BUCILLAMINE
     Indication: RHEUMATOID ARTHRITIS
  6. BONALON [Concomitant]
     Active Substance: ALENDRONATE SODIUM
  7. PYDOXAL [Concomitant]
     Active Substance: PYRIDOXAL
     Indication: ANTIBIOTIC PROPHYLAXIS
  8. BASEN [Concomitant]
     Active Substance: VOGLIBOSE
  9. ALFAROL [Concomitant]
     Active Substance: ALFACALCIDOL
  10. ORENCIA [Suspect]
     Active Substance: ABATACEPT
     Indication: RHEUMATOID ARTHRITIS
     Dosage: 31JAN12
     Route: 041
     Dates: start: 20120116
  11. PREDNISONE. [Concomitant]
     Active Substance: PREDNISONE
     Indication: RHEUMATOID ARTHRITIS
     Dosage: 6MG-13FEB12?5MG-12MAR12?4MG-30JUL12
     Route: 048
     Dates: start: 20110701
  12. ISONIAZID. [Concomitant]
     Active Substance: ISONIAZID
     Indication: ANTIBIOTIC PROPHYLAXIS
  13. BAKTAR [Concomitant]
     Active Substance: SULFAMETHOXAZOLE\TRIMETHOPRIM
     Indication: PROPHYLAXIS
  14. INFREE S [Concomitant]
     Indication: RHEUMATOID ARTHRITIS

REACTIONS (1)
  - Death [Fatal]
